FAERS Safety Report 8607292-3 (Version None)
Quarter: 2012Q3

REPORT INFORMATION
  Report Type: 
  Country: None (occurrence: None)
  Receive Date: 20120807
  Receipt Date: 20120727
  Transmission Date: 20120928
  Serious: Yes (Death, Hospitalization, Other)
  Sender: FDA-Public Use
  Company Number: 2012070136

PATIENT
  Age: 52 Year
  Sex: Male

DRUGS (2)
  1. PREDNISOLONE [Suspect]
     Indication: CROHN'S DISEASE
  2. MESALAMINE [Suspect]
     Indication: CROHN'S DISEASE

REACTIONS (7)
  - DECREASED APPETITE [None]
  - NON-HODGKIN'S LYMPHOMA [None]
  - MALIGNANT ASCITES [None]
  - SEPSIS [None]
  - POST PROCEDURAL FISTULA [None]
  - RESPIRATORY TRACT INFECTION [None]
  - GENERAL PHYSICAL HEALTH DETERIORATION [None]
